FAERS Safety Report 6170984-2 (Version None)
Quarter: 2009Q2

REPORT INFORMATION
  Report Type: 
  Country: None (occurrence: None)
  Receive Date: 20090429
  Receipt Date: 20090422
  Transmission Date: 20091009
  Serious: Yes (Hospitalization)
  Sender: FDA-Public Use
  Company Number: FR-TEVA-192787ISR

PATIENT
  Sex: Male

DRUGS (5)
  1. SALBUTAMOL [Suspect]
     Route: 055
     Dates: start: 20090219
  2. AMOXICILLIN [Suspect]
     Route: 048
     Dates: start: 20090219, end: 20090220
  3. BETAMETHASON VALERATE [Suspect]
     Route: 048
     Dates: start: 20090219, end: 20090219
  4. BUDESONIDE [Suspect]
     Route: 055
     Dates: end: 20090219
  5. BIOCALYPTOL-PHOLCODINE [Suspect]
     Route: 048
     Dates: start: 20090219, end: 20090220

REACTIONS (10)
  - ASTHMATIC CRISIS [None]
  - BLOOD PHOSPHORUS DECREASED [None]
  - DYSPNOEA [None]
  - FATIGUE [None]
  - GLYCOSURIA [None]
  - HYPERGLYCAEMIA [None]
  - HYPOKALAEMIA [None]
  - MYALGIA [None]
  - RESPIRATORY DISORDER [None]
  - VOMITING [None]
